FAERS Safety Report 18067195 (Version 6)
Quarter: 2021Q3

REPORT INFORMATION
  Report Type: Spontaneous
  Country: US (occurrence: US)
  Receive Date: 20200724
  Receipt Date: 20210930
  Transmission Date: 20211014
  Serious: Yes (Hospitalization, Disabling, Other)
  Sender: FDA-Public Use
  Company Number: US-PURDUE-USA-2020-0159037

PATIENT
  Sex: Female

DRUGS (6)
  1. TRAMADOL CR TABLETS (RHODES 21?745) [Suspect]
     Active Substance: TRAMADOL
     Indication: HEADACHE
     Dosage: UNKNOWN
     Route: 048
  2. KETOROLAC [Suspect]
     Active Substance: KETOROLAC TROMETHAMINE
     Indication: PRODUCT USED FOR UNKNOWN INDICATION
     Dosage: UNKNOWN
     Route: 065
  3. OXYCODONE HYDROCHLORIDE (SIMILAR TO NDA 22?272) [Suspect]
     Active Substance: OXYCODONE HYDROCHLORIDE
     Indication: SPINAL FRACTURE
     Dosage: UNKNOWN
     Route: 065
  4. CYCLOBENZAPRINE. [Suspect]
     Active Substance: CYCLOBENZAPRINE
     Indication: PRODUCT USED FOR UNKNOWN INDICATION
     Dosage: UNKNOWN
     Route: 065
  5. OXYCONTIN [Suspect]
     Active Substance: OXYCODONE HYDROCHLORIDE
     Indication: PRODUCT USED FOR UNKNOWN INDICATION
     Dosage: UNKNOWN
     Route: 048
  6. OXYCODONE/ ACETAMINOPHEN TABLETS [Suspect]
     Active Substance: ACETAMINOPHEN\OXYCODONE HYDROCHLORIDE
     Indication: PAIN
     Dosage: UNKNOWN
     Route: 048

REACTIONS (19)
  - Hallucination [Unknown]
  - Amnesia [Unknown]
  - Stress [Unknown]
  - Anxiety [Unknown]
  - Head titubation [Unknown]
  - Sitting disability [Unknown]
  - Walking aid user [Unknown]
  - Hypoacusis [Unknown]
  - General physical health deterioration [Unknown]
  - Asthenia [Unknown]
  - Headache [Unknown]
  - Spinal operation [Unknown]
  - Overdose [Unknown]
  - Learning disability [Unknown]
  - Hemiparesis [Unknown]
  - Pain [Unknown]
  - Cardiac disorder [Unknown]
  - Decreased appetite [Unknown]
  - Developmental delay [Unknown]
